FAERS Safety Report 16393664 (Version 1)
Quarter: 2019Q3

REPORT INFORMATION
  Report Type: Spontaneous
  Country: US (occurrence: US)
  Receive Date: 20190603
  Receipt Date: 20190603
  Transmission Date: 20191004
  Serious: Yes (Hospitalization)
  Sender: FDA-Public Use
  Company Number: None

PATIENT
  Sex: Male

DRUGS (6)
  1. ADVAIR, ALBUTEROL [Concomitant]
  2. VERAPAMIL [Concomitant]
     Active Substance: VERAPAMIL HYDROCHLORIDE
  3. CARVEDILOL, CITALOPRAM [Concomitant]
  4. HYDROCHLOROT, LEVOTHYROXIN [Concomitant]
  5. PREDNISONE, TRELEGY [Concomitant]
  6. XOLAIR [Suspect]
     Active Substance: OMALIZUMAB
     Indication: ASTHMA
     Dosage: ?          OTHER FREQUENCY:Q 2 WEEKS;?
     Route: 058
     Dates: start: 20061122

REACTIONS (1)
  - Hospitalisation [None]
